FAERS Safety Report 7323241-2 (Version None)
Quarter: 2011Q1

REPORT INFORMATION
  Report Type: 
  Country: None (occurrence: None)
  Receive Date: 20110301
  Receipt Date: 20110217
  Transmission Date: 20110831
  Serious: Yes (Other)
  Sender: FDA-Public Use
  Company Number: US-ASTRAZENECA-2011SE10412

PATIENT
  Age: 63 Year
  Sex: Male
  Weight: 80 kg

DRUGS (5)
  1. NETILMICIN [Concomitant]
     Indication: PRODUCT USED FOR UNKNOWN INDICATION
  2. HMG COA REDUCTASE INHIBITORS [Concomitant]
     Indication: PRODUCT USED FOR UNKNOWN INDICATION
  3. CUBICIN [Suspect]
     Route: 042
     Dates: end: 20100101
  4. MEROPENEM [Suspect]
     Indication: PRODUCT USED FOR UNKNOWN INDICATION
     Route: 042
  5. CUBICIN [Suspect]
     Indication: ENDOCARDITIS
     Route: 042

REACTIONS (6)
  - BLOOD CREATININE INCREASED [None]
  - DRUG INEFFECTIVE [None]
  - STAPHYLOCOCCAL INFECTION [None]
  - HYPOTENSION [None]
  - HYPOPERFUSION [None]
  - WHITE BLOOD CELL COUNT ABNORMAL [None]
